FAERS Safety Report 11726702 (Version 2)
Quarter: 2015Q4

REPORT INFORMATION
  Report Type: Spontaneous
  Country: US (occurrence: US)
  Receive Date: 20151112
  Receipt Date: 20151118
  Transmission Date: 20160304
  Serious: No
  Sender: FDA-Public Use
  Company Number: US-009507513-1511USA006073

PATIENT
  Sex: Male

DRUGS (2)
  1. INVANZ [Suspect]
     Active Substance: ERTAPENEM SODIUM
     Indication: SKIN DISORDER
     Dosage: 1 G WITHIN 24 HOURS/100ML WITHIN 1 HOUR
     Route: 042
     Dates: end: 20151016
  2. INVANZ [Suspect]
     Active Substance: ERTAPENEM SODIUM
     Indication: SOFT TISSUE DISORDER
     Dosage: UNK
     Route: 042

REACTIONS (2)
  - Adverse event [Unknown]
  - Diabetes mellitus [Unknown]
